FAERS Safety Report 25419945 (Version 2)
Quarter: 2025Q4

REPORT INFORMATION
  Report Type: Spontaneous
  Country: US (occurrence: US)
  Receive Date: 20250610
  Receipt Date: 20251113
  Transmission Date: 20260118
  Serious: No
  Sender: SANOFI AVENTIS
  Company Number: US-SA-2025SA163711

PATIENT
  Age: 3 Year
  Sex: Male

DRUGS (2)
  1. DUPIXENT [Suspect]
     Active Substance: DUPILUMAB
     Indication: Dermatitis atopic
     Dosage: 300 MG, Q4W
     Route: 058
     Dates: start: 202305
  2. DUPIXENT [Suspect]
     Active Substance: DUPILUMAB
     Indication: Eczema infantile

REACTIONS (2)
  - Eczema [Unknown]
  - Dry skin [Unknown]

NARRATIVE: CASE EVENT DATE: 20250501
